FAERS Safety Report 11131256 (Version 1)
Quarter: 2015Q2

REPORT INFORMATION
  Report Type: Spontaneous
  Country: US (occurrence: US)
  Receive Date: 20150522
  Receipt Date: 20150522
  Transmission Date: 20150821
  Serious: No
  Sender: FDA-Public Use
  Company Number: US-ZOGENIX, INC.-2015ZX000047

PATIENT
  Sex: Male

DRUGS (1)
  1. ZOHYDRO [Suspect]
     Active Substance: HYDROCODONE BITARTRATE
     Indication: PAIN
     Dates: start: 20150227, end: 20150330

REACTIONS (5)
  - Diarrhoea [Unknown]
  - Nausea [Unknown]
  - Weight decreased [Unknown]
  - Therapeutic response decreased [Unknown]
  - Vomiting [Unknown]

NARRATIVE: CASE EVENT DATE: 20150227
